FAERS Safety Report 5121759-4 (Version None)
Quarter: 2006Q4

REPORT INFORMATION
  Report Type: 
  Country: None (occurrence: None)
  Receive Date: 20061003
  Receipt Date: 20060918
  Transmission Date: 20070319
  Serious: Yes (Hospitalization)
  Sender: FDA-Public Use
  Company Number: 2005-01-1122

PATIENT
  Age: 66 Year
  Sex: Female

DRUGS (4)
  1. CELESTONE [Suspect]
     Indication: DRUG USE FOR UNKNOWN INDICATION
     Dosage: IA
     Route: 014
     Dates: start: 20041102, end: 20041102
  2. MYOLASTAN (TETRAZEPAM) [Suspect]
     Indication: DRUG USE FOR UNKNOWN INDICATION
     Dosage: PO
     Route: 048
  3. ACETAMINOPHEN [Suspect]
     Indication: DRUG USE FOR UNKNOWN INDICATION
     Dosage: PO
     Route: 048
  4. CELEBREX [Suspect]
     Indication: DRUG USE FOR UNKNOWN INDICATION
     Dosage: PO
     Route: 048

REACTIONS (7)
  - CHEILITIS [None]
  - OCULAR ICTERUS [None]
  - PALATAL DISORDER [None]
  - PHARYNGEAL ERYTHEMA [None]
  - PLATELET COUNT DECREASED [None]
  - PURPURA [None]
  - STEVENS-JOHNSON SYNDROME [None]
